FAERS Safety Report 21742059 (Version 2)
Quarter: 2022Q4

REPORT INFORMATION
  Report Type: Spontaneous
  Country: US (occurrence: US)
  Receive Date: 20221216
  Receipt Date: 20221220
  Transmission Date: 20230113
  Serious: Yes (Death, Other)
  Sender: FDA-Public Use
  Company Number: US-GILEAD-2022-0609552

PATIENT
  Age: 67 Year
  Sex: Female
  Weight: 78.8 kg

DRUGS (2)
  1. YESCARTA [Suspect]
     Active Substance: AXICABTAGENE CILOLEUCEL
     Indication: Non-Hodgkin^s lymphoma
     Dosage: UNK
     Route: 042
     Dates: start: 20221108, end: 20221108
  2. YESCARTA [Suspect]
     Active Substance: AXICABTAGENE CILOLEUCEL
     Indication: Diffuse large B-cell lymphoma

REACTIONS (2)
  - Immune effector cell-associated neurotoxicity syndrome [Fatal]
  - Neurotoxicity [Recovering/Resolving]

NARRATIVE: CASE EVENT DATE: 20221112
